FAERS Safety Report 5746440-X (Version None)
Quarter: 2008Q2

REPORT INFORMATION
  Report Type: 
  Country: None (occurrence: None)
  Receive Date: 20080522
  Receipt Date: 20080515
  Transmission Date: 20081010
  Serious: Yes (Other)
  Sender: FDA-Public Use
  Company Number: B0361329A

PATIENT
  Age: 29 Year
  Sex: Male

DRUGS (1)
  1. PAROXETINE HCL [Suspect]
     Indication: DEPRESSION
     Route: 065
     Dates: start: 19990408

REACTIONS (30)
  - AGGRESSION [None]
  - ANGER [None]
  - ANXIETY [None]
  - CHILLS [None]
  - CRYING [None]
  - DECREASED APPETITE [None]
  - DEPRESSED MOOD [None]
  - DEPRESSION [None]
  - DISABILITY [None]
  - DIZZINESS [None]
  - DRUG WITHDRAWAL SYNDROME [None]
  - ECONOMIC PROBLEM [None]
  - FACIAL SPASM [None]
  - HEADACHE [None]
  - HYPERHIDROSIS [None]
  - INFLUENZA LIKE ILLNESS [None]
  - INTENTIONAL SELF-INJURY [None]
  - IRRITABILITY [None]
  - MALAISE [None]
  - MOOD SWINGS [None]
  - MUSCULAR WEAKNESS [None]
  - NAUSEA [None]
  - NIGHT SWEATS [None]
  - NIGHTMARE [None]
  - PARAESTHESIA [None]
  - PARANOIA [None]
  - POOR QUALITY SLEEP [None]
  - SLEEP DISORDER [None]
  - TENSION [None]
  - TREMOR [None]
